FAERS Safety Report 13486207 (Version 4)
Quarter: 2017Q4

REPORT INFORMATION
  Report Type: Spontaneous
  Country: US (occurrence: US)
  Receive Date: 20170426
  Receipt Date: 20171107
  Transmission Date: 20180320
  Serious: Yes (Other)
  Sender: FDA-Public Use
  Company Number: US-PFIZER INC-2017175640

PATIENT
  Age: 21 Year
  Sex: Male

DRUGS (15)
  1. ETOPOSIDE. [Suspect]
     Active Substance: ETOPOSIDE
     Indication: TESTICULAR CANCER METASTATIC
     Dosage: 400 MG/M2, CYCLIC (EVERY 21 DAYS) (D 1-3)
     Route: 042
  2. CEFEPIME [Concomitant]
     Active Substance: CEFEPIME HYDROCHLORIDE
     Dosage: 2 G (EVERY 8 HOURS)
     Route: 042
  3. CIPROFLOXACIN. [Concomitant]
     Active Substance: CIPROFLOXACIN
     Indication: FEBRILE NEUTROPENIA
     Dosage: 500 MG, 2X/DAY
     Route: 048
  4. CARBOPLATIN. [Suspect]
     Active Substance: CARBOPLATIN
     Indication: TESTICULAR CANCER METASTATIC
     Dosage: UNK, CYCLIC AUC=8 (EVERY 21 DAYS) (D 1-3)
     Route: 042
  5. ACYCLOVIR /00587301/ [Concomitant]
     Active Substance: ACYCLOVIR
     Indication: FEBRILE NEUTROPENIA
     Dosage: 800 MG, 2X/DAY
     Route: 048
  6. GRANULOCYTE COLONY STIMULATING FACTOR [Concomitant]
     Active Substance: GRANULOCYTE COLONY-STIMULATING FACTOR NOS
     Indication: TESTICULAR CANCER METASTATIC
     Dosage: 10 MCG/KG PER DAY (EVERY 14 DAYS) (DAYS 4-14)
  7. GRANULOCYTE COLONY STIMULATING FACTOR [Concomitant]
     Active Substance: GRANULOCYTE COLONY-STIMULATING FACTOR NOS
     Dosage: 10MCG/KG PER DAY (EVERY 21 DAYS) (D 3-21)
  8. IFOSFAMIDE. [Suspect]
     Active Substance: IFOSFAMIDE
     Indication: TESTICULAR CANCER METASTATIC
     Dosage: 2000 MG/M2, CYCLIC (EVERY 14 DAYS) (DAYS 2-4)
     Route: 042
  9. MESNA. [Concomitant]
     Active Substance: MESNA
     Indication: TESTICULAR CANCER METASTATIC
     Dosage: UNK
  10. CEFEPIME [Concomitant]
     Active Substance: CEFEPIME HYDROCHLORIDE
     Indication: FEBRILE NEUTROPENIA
     Dosage: 2 G, DAILY
     Route: 042
  11. PACLITAXEL. [Suspect]
     Active Substance: PACLITAXEL
     Indication: TESTICULAR CANCER METASTATIC
     Dosage: 250 MG/M2, CYCLIC (EVERY 14 DAYS) (OVER 24 HOURS) DAY 1
     Route: 042
  12. FLUCONAZOLE. [Concomitant]
     Active Substance: FLUCONAZOLE
     Indication: FEBRILE NEUTROPENIA
     Dosage: 200 MG,DAILY
     Route: 048
  13. VANCOMYCIN [Concomitant]
     Active Substance: VANCOMYCIN
     Indication: FEBRILE NEUTROPENIA
     Dosage: 1250 MG, DAILY
     Route: 042
  14. VANCOMYCIN [Concomitant]
     Active Substance: VANCOMYCIN
     Dosage: 1250 MG, 2X/DAY
     Route: 042
  15. MEROPENEM. [Concomitant]
     Active Substance: MEROPENEM
     Dosage: 500 MG (EVERY 6 HOURS)
     Route: 042

REACTIONS (1)
  - Rhabdomyolysis [Recovered/Resolved]
